FAERS Safety Report 22057148 (Version 1)
Quarter: 2023Q1

REPORT INFORMATION
  Report Type: Spontaneous
  Country: AU (occurrence: AU)
  Receive Date: 20230303
  Receipt Date: 20230303
  Transmission Date: 20230417
  Serious: Yes (Other)
  Sender: FDA-Public Use
  Company Number: AU-ALKEM LABORATORIES LIMITED-AU-ALKEM-2023-01641

PATIENT
  Age: 56 Year
  Sex: Male

DRUGS (2)
  1. TACROLIMUS [Suspect]
     Active Substance: TACROLIMUS
     Indication: Immunosuppressant drug therapy
     Dosage: UNK
     Route: 065
  2. BUDESONIDE [Suspect]
     Active Substance: BUDESONIDE
     Indication: Immunosuppressant drug therapy
     Dosage: UNK
     Route: 065

REACTIONS (4)
  - Atypical mycobacterial infection [Recovered/Resolved]
  - Lymphadenitis bacterial [Recovered/Resolved]
  - Gastrointestinal bacterial infection [Recovered/Resolved]
  - Duodenitis [Unknown]
